FAERS Safety Report 6366396-9 (Version None)
Quarter: 2009Q3

REPORT INFORMATION
  Report Type: 
  Country: None (occurrence: None)
  Receive Date: 20090921
  Receipt Date: 20090908
  Transmission Date: 20100115
  Serious: Yes (Other)
  Sender: FDA-Public Use
  Company Number: AE-SOLVAY-00309005128

PATIENT
  Age: 345 Month
  Sex: Male
  Weight: 95 kg

DRUGS (6)
  1. AMARYL [Concomitant]
     Indication: DIABETES MELLITUS
     Dosage: DAILY DOSE: 6 MILLIGRAM(S)
     Route: 048
     Dates: start: 20080101
  2. ANDROGEL [Suspect]
     Indication: DRUG USE FOR UNKNOWN INDICATION
     Dosage: DAILY DOSE: 50 MILLIGRAM(S)
     Route: 062
     Dates: start: 20090801, end: 20090801
  3. ANDROGEL [Suspect]
     Dosage: DAILY DOSE: 50 MILLIGRAM(S)
     Route: 062
     Dates: start: 20090801, end: 20090801
  4. APPROVEL [Concomitant]
     Indication: HYPERTENSION
     Dosage: DAILY DOSE: 150 MILLIGRAM(S)
     Route: 048
     Dates: start: 20080101
  5. JANUMET [Concomitant]
     Indication: DIABETES MELLITUS
     Dosage: DAILY DOSE: 100/2000GM; AS USED: 50/1000GM; FREQUENCY: TWICE A DAY.
     Route: 048
     Dates: start: 20080101
  6. CRESTOR [Concomitant]
     Indication: LIPIDS
     Dosage: DAILY DOSE: 10 MILLIGRAM(S)
     Route: 048
     Dates: start: 20080101

REACTIONS (1)
  - DIARRHOEA [None]
